FAERS Safety Report 8219975-8 (Version None)
Quarter: 2012Q1

REPORT INFORMATION
  Report Type: 
  Country: None (occurrence: None)
  Receive Date: 20120319
  Receipt Date: 20120307
  Transmission Date: 20120608
  Serious: Yes (Other)
  Sender: FDA-Public Use
  Company Number: US-ROCHE-784159

PATIENT
  Sex: Male
  Weight: 75.818 kg

DRUGS (3)
  1. ACCUTANE [Suspect]
     Dates: start: 20041001, end: 20050126
  2. CLARAVIS [Suspect]
     Indication: ACNE
     Route: 065
     Dates: start: 20040101, end: 20050101
  3. ACCUTANE [Suspect]
     Indication: ACNE
     Route: 065

REACTIONS (7)
  - INFLAMMATORY BOWEL DISEASE [None]
  - COLITIS ULCERATIVE [None]
  - DRY SKIN [None]
  - LIP DRY [None]
  - IRRITABLE BOWEL SYNDROME [None]
  - CONVULSION [None]
  - MIGRAINE [None]
